FAERS Safety Report 5956039-8 (Version None)
Quarter: 2008Q4

REPORT INFORMATION
  Report Type: 
  Country: None (occurrence: None)
  Receive Date: 20081113
  Receipt Date: 20081104
  Transmission Date: 20090506
  Serious: Yes (Death)
  Sender: FDA-Public Use
  Company Number: GXBR2008US01634

PATIENT
  Age: 67 Year
  Sex: Male
  Weight: 113.8 kg

DRUGS (4)
  1. CLOMIPRAMINE HCL [Suspect]
     Dosage: 100 MG QAM, 150MG QHS, ORAL, 50 MG, BID2SDO
     Route: 048
  2. CLOZAPINE [Suspect]
     Indication: SCHIZOAFFECTIVE DISORDER
     Dosage: 50MG QAM, 400,G QHS, ORAL
     Route: 048
     Dates: start: 19980101
  3. LORAZEPAM [Concomitant]
  4. BUSPIRONE HCL [Concomitant]

REACTIONS (4)
  - ARTERIOSCLEROSIS [None]
  - CARDIOMEGALY [None]
  - DRUG TOXICITY [None]
  - OBESITY [None]
